FAERS Safety Report 21934567 (Version 1)
Quarter: 2023Q1

REPORT INFORMATION
  Report Type: Other
  Country: CA (occurrence: CA)
  Receive Date: 20230201
  Receipt Date: 20230201
  Transmission Date: 20230417
  Serious: Yes (Other)
  Sender: FDA-Public Use
  Company Number: CA-CELLTRION INC.-2023CA001666

PATIENT

DRUGS (16)
  1. RITUXIMAB [Suspect]
     Active Substance: RITUXIMAB
     Indication: Granulomatosis with polyangiitis
     Dosage: 800.0 MILLIGRAM, 1 EVERY 1 WEEKS
     Route: 041
  2. RITUXIMAB [Suspect]
     Active Substance: RITUXIMAB
     Indication: Anti-neutrophil cytoplasmic antibody positive vasculitis
     Dosage: 500.0 MILLIGRAM, 1 EVERY 6 MONTHS
     Route: 041
  3. RITUXIMAB [Suspect]
     Active Substance: RITUXIMAB
     Dosage: 500 MILLIGRAM
     Route: 041
  4. ASPIRIN [Concomitant]
     Active Substance: ASPIRIN
     Dosage: 81.0 MILLIGRAM
     Route: 065
  5. AMITRIPTYLINE [Concomitant]
     Active Substance: AMITRIPTYLINE
  6. BISOPROLOL [Concomitant]
     Active Substance: BISOPROLOL
  7. CALCIUM [Concomitant]
     Active Substance: CALCIUM
  8. METFORMIN [Concomitant]
     Active Substance: METFORMIN HYDROCHLORIDE
     Route: 065
  9. PERINDOPRIL [Concomitant]
     Active Substance: PERINDOPRIL
  10. PREDNISONE [Concomitant]
     Active Substance: PREDNISONE
  11. QUETIAPINE FUMARATE [Concomitant]
     Active Substance: QUETIAPINE FUMARATE
  12. ROSUVASTATIN [Concomitant]
     Active Substance: ROSUVASTATIN
     Route: 058
  13. SEPTRA [Concomitant]
     Active Substance: SULFAMETHOXAZOLE\TRIMETHOPRIM
     Dosage: 3 EVERY 1 WEEKS
     Route: 065
  14. DIVALPROEX SODIUM [Concomitant]
     Active Substance: DIVALPROEX SODIUM
  15. VENLAFAXINE [Concomitant]
     Active Substance: VENLAFAXINE HYDROCHLORIDE
  16. ZANTAC [Concomitant]
     Active Substance: RANITIDINE HYDROCHLORIDE

REACTIONS (14)
  - Dry eye [Unknown]
  - Dyspnoea exertional [Unknown]
  - Obstructive sleep apnoea syndrome [Unknown]
  - Painful respiration [Unknown]
  - Paraesthesia [Unknown]
  - Ulcer haemorrhage [Unknown]
  - Arthralgia [Unknown]
  - Cough [Unknown]
  - Fatigue [Unknown]
  - Insomnia [Unknown]
  - Myalgia [Unknown]
  - Nasal congestion [Unknown]
  - Pain [Unknown]
  - Off label use [Unknown]
